FAERS Safety Report 8071321-9 (Version None)
Quarter: 2011Q4

REPORT INFORMATION
  Report Type: 
  Country: None (occurrence: None)
  Receive Date: 20111221
  Receipt Date: 20101207
  Transmission Date: 20120403
  Serious: Yes (Disabling)
  Sender: FDA-Public Use
  Company Number: PHHY2010US65393

PATIENT
  Age: 56 Year
  Sex: Female
  Weight: 97.1 kg

DRUGS (2)
  1. EXJADE [Suspect]
     Indication: BLOOD IRON INCREASED
     Dosage: 2000 MG, QD, ORAL, 500 MG, BID, ORAL
     Route: 048
     Dates: start: 20100809, end: 20100826
  2. EXJADE [Suspect]
     Indication: BLOOD IRON INCREASED
     Dosage: 2000 MG, QD, ORAL, 500 MG, BID, ORAL
     Route: 048
     Dates: start: 20100729, end: 20100829

REACTIONS (4)
  - GASTROOESOPHAGEAL REFLUX DISEASE [None]
  - ABDOMINAL PAIN [None]
  - NAUSEA [None]
  - MALAISE [None]
